FAERS Safety Report 9263748 (Version 1)
Quarter: 2013Q1

REPORT INFORMATION
  Report Type: Spontaneous
  Country: US (occurrence: None)
  Receive Date: 20121212
  Receipt Date: 20121212
  Transmission Date: 20140127
  Serious: No
  Sender: FDA-Public Use
  Company Number: 1211USA001400

PATIENT
  Age: 64 Year
  Sex: Female

DRUGS (3)
  1. PEG-INTRON [Suspect]
     Indication: HEPATITIS C
     Dates: start: 20121004
  2. RIBAVIRIN [Suspect]
     Dates: start: 20121004
  3. VICTRELIS ( BOCEPREVIR) CAPSULE [Suspect]
     Dates: start: 20121025

REACTIONS (2)
  - Skin hypopigmentation [None]
  - Paraesthesia [None]
